FAERS Safety Report 15255698 (Version 1)
Quarter: 2018Q3

REPORT INFORMATION
  Report Type: Spontaneous
  Country: TN (occurrence: TN)
  Receive Date: 20180808
  Receipt Date: 20180808
  Transmission Date: 20181010
  Serious: Yes (Other)
  Sender: FDA-Public Use
  Company Number: TN-MYLANLABS-2018M1059990

PATIENT
  Age: 32 Year
  Sex: Female

DRUGS (2)
  1. TIAPROFENIC ACID [Concomitant]
     Active Substance: TIAPROFENIC ACID
     Indication: EAR INFECTION
     Route: 065
  2. OXACILLIN [Suspect]
     Active Substance: OXACILLIN SODIUM
     Indication: EAR INFECTION
     Route: 065

REACTIONS (1)
  - Acute generalised exanthematous pustulosis [Recovered/Resolved]
